FAERS Safety Report 18199462 (Version 1)
Quarter: 2020Q3

REPORT INFORMATION
  Report Type: Other
  Country: CA (occurrence: CA)
  Receive Date: 20200826
  Receipt Date: 20200826
  Transmission Date: 20201103
  Serious: Yes (Other)
  Sender: FDA-Public Use
  Company Number: CA-COVIS PHARMA B.V.-2020COV00386

PATIENT
  Age: 88 Year
  Sex: Female
  Weight: 58.96 kg

DRUGS (6)
  1. OMEPRAZOLE. [Concomitant]
     Active Substance: OMEPRAZOLE
  2. HYLO LUBRICATING EYE DROPS [Concomitant]
  3. OMNARIS [Suspect]
     Active Substance: CICLESONIDE
     Indication: UPPER-AIRWAY COUGH SYNDROME
     Dosage: 100 MG, 2X/DAY
     Route: 045
  4. OMNARIS [Suspect]
     Active Substance: CICLESONIDE
     Indication: RHINORRHOEA
  5. MONOPROST [Concomitant]
     Active Substance: LATANOPROST
  6. COSOPT [Concomitant]
     Active Substance: DORZOLAMIDE HYDROCHLORIDE\TIMOLOL MALEATE

REACTIONS (7)
  - Eye pain [Unknown]
  - Ocular discomfort [Unknown]
  - Erythema of eyelid [Unknown]
  - Eye irritation [Unknown]
  - Dry eye [Unknown]
  - Vision blurred [Unknown]
  - Foreign body sensation in eyes [Unknown]
